FAERS Safety Report 7797662-8 (Version None)
Quarter: 2011Q4

REPORT INFORMATION
  Report Type: 
  Country: None (occurrence: None)
  Receive Date: 20111003
  Receipt Date: 20110920
  Transmission Date: 20120403
  Serious: Yes (Hospitalization)
  Sender: FDA-Public Use
  Company Number: B0750850A

PATIENT
  Age: 40 Year
  Sex: Male

DRUGS (1)
  1. CEFUROXIME AXETIL [Suspect]
     Dosage: 500 MG/ORAL
     Route: 048

REACTIONS (2)
  - KOUNIS SYNDROME [None]
  - ECG SIGNS OF MYOCARDIAL ISCHAEMIA [None]
